FAERS Safety Report 6776199-9 (Version None)
Quarter: 2010Q2

REPORT INFORMATION
  Report Type: 
  Country: None (occurrence: None)
  Receive Date: 20100615
  Receipt Date: 20100531
  Transmission Date: 20101027
  Serious: Yes (Hospitalization)
  Sender: FDA-Public Use
  Company Number: 2010AP001035

PATIENT
  Age: 62 Year
  Sex: Female

DRUGS (6)
  1. LITHIUM CARBONATE CAP [Suspect]
     Dosage: 300 MG;BID
  2. LISINOPRIL [Suspect]
     Indication: HYPERTENSION
     Dosage: 10 MG
  3. HYDROCHLOROTHIAZIDE [Concomitant]
  4. CARBAMAZEPINE [Concomitant]
  5. VALPROIC ACID [Concomitant]
  6. OLANZAPINE [Concomitant]

REACTIONS (17)
  - ASTHENIA [None]
  - ATAXIA [None]
  - BIPOLAR DISORDER [None]
  - BLOOD CREATININE INCREASED [None]
  - BRADYPHRENIA [None]
  - CONDITION AGGRAVATED [None]
  - DRUG INTERACTION [None]
  - DYSPHONIA [None]
  - HAEMODIALYSIS [None]
  - HYPERTENSION [None]
  - MOVEMENT DISORDER [None]
  - MUSCULOSKELETAL STIFFNESS [None]
  - NEUROLOGICAL SYMPTOM [None]
  - RENAL FAILURE ACUTE [None]
  - RESTLESSNESS [None]
  - SPEECH DISORDER [None]
  - THERAPEUTIC AGENT TOXICITY [None]
